FAERS Safety Report 4844682-9 (Version None)
Quarter: 2005Q4

REPORT INFORMATION
  Report Type: 
  Country: None (occurrence: None)
  Receive Date: 20051129
  Receipt Date: 20051118
  Transmission Date: 20060501
  Serious: Yes (Death, Life-Threatening)
  Sender: FDA-Public Use
  Company Number: 200321872BWH

PATIENT
  Age: 61 Year
  Sex: Male
  Weight: 91.173 kg

DRUGS (4)
  1. DTIC-DOME [Suspect]
     Indication: METASTATIC MALIGNANT MELANOMA
     Dosage: 540 MG, TOTAL DAILY, INTRAVENOUS
     Route: 042
     Dates: start: 20030602, end: 20030628
  2. MDX-010 (BMS-743016) - (IPILIMUMAB) (UNCODEABLE ^INVESTIGATIONAL DRUG^ [Suspect]
     Dosage: 3 MG/KG. OM, INTRAVENOUS
     Route: 042
     Dates: start: 20030728
  3. ALLOGENIC WHOLE CELL CANCER VACCINE WITH BCGIE [Concomitant]
  4. GM-CSF [Concomitant]

REACTIONS (16)
  - ARTERIOSCLEROSIS CORONARY ARTERY [None]
  - CARDIAC FAILURE [None]
  - CARDIO-RESPIRATORY ARREST [None]
  - CIRCULATORY COLLAPSE [None]
  - COAGULOPATHY [None]
  - DRUG TOXICITY [None]
  - GENERAL PHYSICAL HEALTH DETERIORATION [None]
  - HEPATIC FAILURE [None]
  - HEPATIC NECROSIS [None]
  - HYPERSENSITIVITY [None]
  - MULTI-ORGAN FAILURE [None]
  - PLATELET COUNT DECREASED [None]
  - RENAL FAILURE ACUTE [None]
  - SEPTIC SHOCK [None]
  - VASCULAR INJURY [None]
  - VENOOCCLUSIVE LIVER DISEASE [None]
